FAERS Safety Report 9618729 (Version 2)
Quarter: 2013Q4

REPORT INFORMATION
  Report Type: Spontaneous
  Country: JP (occurrence: JP)
  Receive Date: 20131014
  Receipt Date: 20131107
  Transmission Date: 20140711
  Serious: No
  Sender: FDA-Public Use
  Company Number: JP-ELI_LILLY_AND_COMPANY-JP201310001039

PATIENT
  Age: 28 Year
  Sex: Male

DRUGS (4)
  1. ZYPREXA [Suspect]
     Indication: DEPRESSION
     Dosage: 5 MG, QD
     Route: 048
     Dates: start: 20130920, end: 20130926
  2. CYMBALTA [Concomitant]
     Indication: DEPRESSION
     Dosage: UNK
     Route: 048
  3. JZOLOFT [Concomitant]
     Indication: DEPRESSION
     Dosage: UNK
     Route: 048
  4. DEPAS [Concomitant]
     Indication: DEPRESSION
     Dosage: UNK
     Route: 048

REACTIONS (2)
  - White blood cell count increased [Recovered/Resolved]
  - Eosinophil count increased [Recovered/Resolved]
